FAERS Safety Report 12453071 (Version 5)
Quarter: 2016Q3

REPORT INFORMATION
  Report Type: Report from Study
  Country: US (occurrence: US)
  Receive Date: 20160609
  Receipt Date: 20160824
  Transmission Date: 20161109
  Serious: Yes (Other)
  Sender: FDA-Public Use
  Company Number: US-EISAI MEDICAL RESEARCH-EC-2016-016550

PATIENT
  Age: 63 Year
  Sex: Female
  Weight: 59.7 kg

DRUGS (22)
  1. ERIBULIN [Suspect]
     Active Substance: ERIBULIN
     Route: 041
     Dates: start: 20160621
  2. ERIBULIN [Suspect]
     Active Substance: ERIBULIN
     Indication: BREAST CANCER METASTATIC
     Route: 041
     Dates: start: 20160126, end: 20160405
  3. PRILOSEC [Concomitant]
     Active Substance: OMEPRAZOLE MAGNESIUM
  4. MAGIC MOUTHWASH [Concomitant]
     Active Substance: DIPHENHYDRAMINE HYDROCHLORIDE\LIDOCAINE HYDROCHLORIDE\NYSTATIN
  5. ATIVAN [Concomitant]
     Active Substance: LORAZEPAM
  6. ERIBULIN [Suspect]
     Active Substance: ERIBULIN
     Route: 041
     Dates: start: 20160510, end: 20160517
  7. SENOKOT [Concomitant]
     Active Substance: SENNOSIDES
  8. NYSTOP [Concomitant]
     Active Substance: NYSTATIN
  9. PERIDEX [Concomitant]
     Active Substance: CHLORHEXIDINE GLUCONATE
  10. TEMOVATE [Concomitant]
     Active Substance: CLOBETASOL PROPIONATE
  11. VITAMIN E [Concomitant]
     Active Substance: .ALPHA.-TOCOPHEROL
  12. GELCLAIR [Concomitant]
  13. VITAMIN E [Concomitant]
     Active Substance: .ALPHA.-TOCOPHEROL
  14. MAG + AL/SIM/DIPHENHYD/LIDOCAINE [Concomitant]
  15. DELTASONE [Concomitant]
     Active Substance: PREDNISONE
  16. ERIBULIN [Suspect]
     Active Substance: ERIBULIN
     Route: 041
     Dates: start: 20160419, end: 20160419
  17. PEMBROLIZUMAB. [Suspect]
     Active Substance: PEMBROLIZUMAB
     Indication: BREAST CANCER METASTATIC
     Route: 041
     Dates: start: 20160126
  18. OXYCODONE [Concomitant]
     Active Substance: OXYCODONE
  19. COMPAZINE [Concomitant]
     Active Substance: PROCHLORPERAZINE MALEATE
  20. DECADRON [Concomitant]
     Active Substance: DEXAMETHASONE
  21. NYSTATIN. [Concomitant]
     Active Substance: NYSTATIN
  22. PEPCID [Concomitant]
     Active Substance: FAMOTIDINE

REACTIONS (2)
  - Stomatitis [Recovered/Resolved]
  - Rash maculo-papular [Recovered/Resolved]

NARRATIVE: CASE EVENT DATE: 20160419
